FAERS Safety Report 25077902 (Version 2)
Quarter: 2025Q2

REPORT INFORMATION
  Report Type: Report from Study
  Country: US (occurrence: US)
  Receive Date: 20250314
  Receipt Date: 20250408
  Transmission Date: 20250716
  Serious: Yes (Hospitalization, Other)
  Sender: ACADIA PHARMACEUTICALS
  Company Number: US-ACADIA PHARMACEUTICALS INC.-ACA-2025-PIM-002758

PATIENT
  Age: 77 Year
  Sex: Male

DRUGS (27)
  1. NUPLAZID [Suspect]
     Active Substance: PIMAVANSERIN TARTRATE
     Indication: Parkinson^s disease
     Dosage: 34 MILLIGRAM, QD
     Route: 048
     Dates: start: 20230710
  2. NUPLAZID [Suspect]
     Active Substance: PIMAVANSERIN TARTRATE
     Indication: Hallucination
  3. AMLODIPINE [Concomitant]
     Active Substance: AMLODIPINE BESYLATE
  4. PLAVIX [Concomitant]
     Active Substance: CLOPIDOGREL BISULFATE
  5. RANOLAZINE [Concomitant]
     Active Substance: RANOLAZINE
  6. ISOSORBIDE MONONITRATE [Concomitant]
     Active Substance: ISOSORBIDE MONONITRATE
  7. LIPITOR [Concomitant]
     Active Substance: ATORVASTATIN CALCIUM
  8. RASAGILINE [Concomitant]
     Active Substance: RASAGILINE
  9. ROPINIROLE [Concomitant]
     Active Substance: ROPINIROLE
  10. CARBIDOPA\LEVODOPA [Concomitant]
     Active Substance: CARBIDOPA\LEVODOPA
  11. RYTARY [Concomitant]
     Active Substance: CARBIDOPA\LEVODOPA
  12. FLOMAX [Concomitant]
     Active Substance: TAMSULOSIN HYDROCHLORIDE
  13. AMANTADINE [Concomitant]
     Active Substance: AMANTADINE
  14. STOOL SOFTENER (DOCUSATE) [Concomitant]
     Active Substance: DOCUSATE
  15. FINASTERIDE [Concomitant]
     Active Substance: FINASTERIDE
  16. LEVETIRACETAM [Concomitant]
     Active Substance: LEVETIRACETAM
  17. PANTOPRAZOLE [Concomitant]
     Active Substance: PANTOPRAZOLE
  18. MIRTAZAPINE [Concomitant]
     Active Substance: MIRTAZAPINE
  19. ACETAMINOPHEN\HYDROCODONE [Concomitant]
     Active Substance: ACETAMINOPHEN\HYDROCODONE
  20. ONDANSETRON [Concomitant]
     Active Substance: ONDANSETRON
  21. JARDIANCE [Concomitant]
     Active Substance: EMPAGLIFLOZIN
  22. GEMTESA [Concomitant]
     Active Substance: VIBEGRON
  23. LYRICA [Concomitant]
     Active Substance: PREGABALIN
  24. CETIRIZINE [Concomitant]
     Active Substance: CETIRIZINE HYDROCHLORIDE
  25. ZYRTEC [Concomitant]
     Active Substance: CETIRIZINE HYDROCHLORIDE
  26. ZOFRAN [Concomitant]
     Active Substance: ONDANSETRON HYDROCHLORIDE
  27. LASIX [Concomitant]
     Active Substance: FUROSEMIDE

REACTIONS (3)
  - Cerebrovascular accident [Recovered/Resolved]
  - Myocardial infarction [Recovered/Resolved]
  - Mobility decreased [Recovered/Resolved]

NARRATIVE: CASE EVENT DATE: 20250226
